FAERS Safety Report 6103494-9 (Version None)
Quarter: 2009Q1

REPORT INFORMATION
  Report Type: 
  Country: None (occurrence: None)
  Receive Date: 20090302
  Receipt Date: 20090212
  Transmission Date: 20090719
  Serious: Yes (Other)
  Sender: FDA-Public Use
  Company Number: 8043423

PATIENT
  Age: 66 Year
  Sex: Female

DRUGS (1)
  1. PREDNISOLONE [Suspect]
     Indication: POLYMYALGIA RHEUMATICA

REACTIONS (3)
  - MULTI-ORGAN FAILURE [None]
  - PHAEOCHROMOCYTOMA [None]
  - RHABDOMYOLYSIS [None]
